FAERS Safety Report 7395042-0 (Version None)
Quarter: 2011Q2

REPORT INFORMATION
  Report Type: 
  Country: None (occurrence: None)
  Receive Date: 20110405
  Receipt Date: 20110329
  Transmission Date: 20111010
  Serious: Yes (Other)
  Sender: FDA-Public Use
  Company Number: US-PFIZER INC-2011071021

PATIENT

DRUGS (4)
  1. LITHIUM CARBONATE [Suspect]
     Indication: BIPOLAR DISORDER
  2. DEPAKOTE [Suspect]
     Indication: BIPOLAR DISORDER
  3. SEROQUEL [Suspect]
     Indication: BIPOLAR DISORDER
     Dosage: 100 MG, UNK
  4. GEODON [Suspect]

REACTIONS (2)
  - WEIGHT INCREASED [None]
  - TARDIVE DYSKINESIA [None]
